FAERS Safety Report 7784761-X (Version None)
Quarter: 2011Q3

REPORT INFORMATION
  Report Type: 
  Country: None (occurrence: None)
  Receive Date: 20110928
  Receipt Date: 20110923
  Transmission Date: 20111222
  Serious: Yes (Hospitalization)
  Sender: FDA-Public Use
  Company Number: US-B.I. PHARMACEUTICALS,INC./RIDGEFIELD-2011-BP-20575BP

PATIENT
  Age: 83 Year
  Sex: Female

DRUGS (11)
  1. JANTOVEN [Concomitant]
     Indication: CORONARY ARTERY DISEASE
     Dosage: 2.5 MG
     Route: 048
  2. AMLODIPINE [Concomitant]
     Indication: HYPERTENSION
     Dosage: 5 MG
     Route: 048
  3. LOSARTAN POTASSIUM [Concomitant]
     Indication: HYPERTENSION
     Dosage: 100 MG
     Route: 048
  4. CYMBALTA [Concomitant]
     Indication: DEPRESSION
     Dosage: 40 MG
     Route: 048
  5. VITAMIN B COMPLEX CAP [Concomitant]
     Indication: SUPPLEMENTATION THERAPY
  6. MULTIVITAMIN [Concomitant]
     Indication: SUPPLEMENTATION THERAPY
  7. LIPITOR [Concomitant]
     Indication: BLOOD CHOLESTEROL INCREASED
     Dosage: 40 MG
     Route: 048
  8. PANTOPRAZOLE [Concomitant]
     Indication: GASTROOESOPHAGEAL REFLUX DISEASE
     Dosage: 40 MG
     Route: 048
  9. MIRAPEX [Suspect]
     Indication: TREMOR
     Dosage: 1.5 MG
     Route: 048
     Dates: start: 20110808, end: 20110821
  10. PROPRANOLOL [Concomitant]
     Indication: HYPERTENSION
     Dosage: 300 MG
     Route: 048
  11. VIT D [Concomitant]
     Indication: SUPPLEMENTATION THERAPY
     Route: 048

REACTIONS (4)
  - ABDOMINAL PAIN [None]
  - CONSTIPATION [None]
  - DIVERTICULITIS [None]
  - HALLUCINATION [None]
